FAERS Safety Report 5994959-9 (Version None)
Quarter: 2008Q4

REPORT INFORMATION
  Report Type: 
  Country: None (occurrence: None)
  Receive Date: 20081212
  Receipt Date: 20081203
  Transmission Date: 20090506
  Serious: Yes (Other)
  Sender: FDA-Public Use
  Company Number: ES-JNJCH-2008057074

PATIENT
  Age: 80 Year
  Sex: Female

DRUGS (5)
  1. BENADRYL [Suspect]
     Indication: URTICARIA
     Route: 048
     Dates: start: 20080125, end: 20080101
  2. LORMETAZEPAM [Concomitant]
     Indication: INSOMNIA
     Dosage: TEXT:1 MG ONCE DAILY
     Route: 048
  3. PAROXETINE HCL [Concomitant]
     Indication: DYSTHYMIC DISORDER
     Dosage: TEXT:20 MG ONCE DAILY
     Route: 048
  4. ALAPRYL [Concomitant]
     Indication: INSOMNIA
     Dosage: TEXT:40 MG ONCE DAILY
     Route: 048
  5. APOCARD [Concomitant]
     Indication: DRUG USE FOR UNKNOWN INDICATION
     Dosage: TEXT:100 MG ONCE DAILY
     Route: 048

REACTIONS (1)
  - THROMBOCYTOPENIA [None]
